FAERS Safety Report 10344487 (Version 1)
Quarter: 2014Q3

REPORT INFORMATION
  Report Type: Spontaneous
  Country: US (occurrence: None)
  Receive Date: 20140724
  Receipt Date: 20140724
  Transmission Date: 20150326
  Serious: Yes (Disabling)
  Sender: FDA-Public Use
  Company Number: None

PATIENT
  Age: 38 Year
  Sex: Male
  Weight: 108.86 kg

DRUGS (1)
  1. ANDROXY [Suspect]
     Active Substance: FLUOXYMESTERONE
     Indication: BLOOD TESTOSTERONE DECREASED
     Dosage: 1 PILL ONCE DAILY TAKEN BY MOUTH
     Route: 048

REACTIONS (2)
  - Drug effect decreased [None]
  - Breast swelling [None]

NARRATIVE: CASE EVENT DATE: 20140709
